FAERS Safety Report 21227918 (Version 2)
Quarter: 2022Q3

REPORT INFORMATION
  Report Type: Spontaneous
  Country: DE (occurrence: DE)
  Receive Date: 20220818
  Receipt Date: 20220901
  Transmission Date: 20221026
  Serious: Yes (Other)
  Sender: FDA-Public Use
  Company Number: DE-DCGMA-21195981

PATIENT
  Sex: Male
  Weight: 114 kg

DRUGS (1)
  1. CLINDAMYCIN HYDROCHLORIDE [Suspect]
     Active Substance: CLINDAMYCIN HYDROCHLORIDE
     Dosage: 600 MG, 1X/DAY

REACTIONS (3)
  - Renal impairment [Unknown]
  - Renal impairment [Unknown]
  - Off label use [Unknown]
